FAERS Safety Report 4465027-2 (Version None)
Quarter: 2004Q4

REPORT INFORMATION
  Report Type: 
  Country: None (occurrence: None)
  Receive Date: 20041004
  Receipt Date: 20040909
  Transmission Date: 20050328
  Serious: Yes (Hospitalization)
  Sender: FDA-Public Use
  Company Number: NZ-ROCHE-380000

PATIENT
  Age: 30 Year
  Sex: Male

DRUGS (5)
  1. XENICAL [Suspect]
     Indication: OBESITY
     Route: 048
     Dates: start: 20040628, end: 20040910
  2. SOMAC [Concomitant]
     Indication: ILL-DEFINED DISORDER
     Route: 048
  3. SEREVENT [Concomitant]
     Indication: ASTHMA
     Route: 065
  4. FLIXOTIDE INHALER [Concomitant]
     Indication: ASTHMA
  5. SALBUTAMOL INHALER [Concomitant]
     Indication: ASTHMA

REACTIONS (7)
  - ABNORMAL BEHAVIOUR [None]
  - ASTHMA [None]
  - DEPRESSED MOOD [None]
  - HAEMATOCHEZIA [None]
  - HAEMORRHAGE [None]
  - INSOMNIA [None]
  - PRURITUS [None]
